FAERS Safety Report 9417657 (Version 1)
Quarter: 2013Q3

REPORT INFORMATION
  Report Type: Spontaneous
  Country: US (occurrence: None)
  Receive Date: 20130722
  Receipt Date: 20130722
  Transmission Date: 20140515
  Serious: Yes (Other)
  Sender: FDA-Public Use
  Company Number: None

PATIENT
  Sex: Female

DRUGS (1)
  1. EXJADE [Suspect]
     Route: 048
     Dates: start: 20121129

REACTIONS (4)
  - Rash [None]
  - Vulvovaginal pruritus [None]
  - Aphthous stomatitis [None]
  - Liver function test abnormal [None]
